FAERS Safety Report 13974275 (Version 1)
Quarter: 2017Q3

REPORT INFORMATION
  Report Type: Spontaneous
  Country: ES (occurrence: ES)
  Receive Date: 20170915
  Receipt Date: 20170915
  Transmission Date: 20171128
  Serious: Yes (Other)
  Sender: FDA-Public Use
  Company Number: ES-009507513-2012SP003168

PATIENT
  Age: 35 Year
  Sex: Female
  Weight: 68.6 kg

DRUGS (1)
  1. IMPLANON [Suspect]
     Active Substance: ETONOGESTREL
     Indication: CONTRACEPTION
     Dosage: 1 DF, UNK
     Route: 059
     Dates: start: 201107

REACTIONS (8)
  - Pregnancy with implant contraceptive [Recovered/Resolved]
  - Drug dose omission [Unknown]
  - Complication associated with device [Unknown]
  - Migration of implanted drug [Unknown]
  - Unintended pregnancy [Recovered/Resolved]
  - Implant site scar [Unknown]
  - Complication of device insertion [Unknown]
  - Abortion threatened [Recovered/Resolved]

NARRATIVE: CASE EVENT DATE: 2011
